FAERS Safety Report 4301500-5 (Version None)
Quarter: 2004Q1

REPORT INFORMATION
  Report Type: 
  Country: None (occurrence: None)
  Receive Date: 20040219
  Receipt Date: 20040206
  Transmission Date: 20041129
  Serious: Yes (Other)
  Sender: FDA-Public Use
  Company Number: S03-USA-03938-01

PATIENT
  Age: 22 Year
  Sex: Male
  Weight: 73.9363 kg

DRUGS (2)
  1. LEXAPRO [Suspect]
     Indication: ANXIETY
     Dosage: 10 MG ONCE PO
     Route: 048
     Dates: start: 20030912, end: 20030912
  2. LEXAPRO [Suspect]
     Indication: PANIC ATTACK
     Dosage: 10 MG ONCE PO
     Route: 048
     Dates: start: 20030912, end: 20030912

REACTIONS (8)
  - DIZZINESS [None]
  - HEAD INJURY [None]
  - HYPOAESTHESIA [None]
  - LOSS OF CONSCIOUSNESS [None]
  - NAUSEA [None]
  - PARAESTHESIA [None]
  - ROAD TRAFFIC ACCIDENT [None]
  - SKIN LACERATION [None]
